FAERS Safety Report 7377270-3 (Version None)
Quarter: 2011Q1

REPORT INFORMATION
  Report Type: 
  Country: None (occurrence: None)
  Receive Date: 20110328
  Receipt Date: 20110228
  Transmission Date: 20110831
  Serious: Yes (Hospitalization)
  Sender: FDA-Public Use
  Company Number: US-BAYER-201029731NA

PATIENT
  Sex: Female
  Weight: 51.701 kg

DRUGS (8)
  1. CEPHALEXIN [Concomitant]
     Dosage: 500 MG, TID
     Route: 048
     Dates: start: 20071106
  2. TYPHERIX [Concomitant]
     Dosage: UNK
     Dates: start: 20080523, end: 20080524
  3. HYOSCINE HBR HYT [Concomitant]
     Indication: GASTROINTESTINAL PAIN
     Dosage: UNK
     Dates: start: 20080101
  4. OMEPRAZOLE [Concomitant]
     Indication: ABDOMINAL PAIN UPPER
     Dosage: UNK UNK, QD
     Dates: start: 20080204
  5. UNCODEABLE ^UNCLASSIFIABLE^ [Concomitant]
     Dosage: 0.5 ML, UNK
     Dates: start: 20080905
  6. YASMIN [Suspect]
     Indication: CONTRACEPTION
     Route: 048
     Dates: start: 20070201, end: 20090901
  7. RANITIDINE [Concomitant]
     Indication: ABDOMINAL PAIN
     Dosage: 150 MG, BID
     Route: 048
     Dates: start: 20071026
  8. GAVISCON [Concomitant]
     Indication: ABDOMINAL PAIN
     Dosage: UNK
     Dates: start: 20070926

REACTIONS (4)
  - CHOLELITHIASIS [None]
  - CHOLECYSTITIS CHRONIC [None]
  - ABDOMINAL PAIN [None]
  - GALLBLADDER DISORDER [None]
